FAERS Safety Report 11605207 (Version 8)
Quarter: 2020Q1

REPORT INFORMATION
  Report Type: Report from Study
  Country: US (occurrence: US)
  Receive Date: 20151007
  Receipt Date: 20200214
  Transmission Date: 20200409
  Serious: Yes (Disabling, Other)
  Sender: FDA-Public Use
  Company Number: US-SA-2015SA091387

PATIENT
  Age: 58 Year
  Sex: Male

DRUGS (2)
  1. ALEMTUZUMAB [Suspect]
     Active Substance: ALEMTUZUMAB
     Indication: MULTIPLE SCLEROSIS
     Dosage: 12 MG,QD
     Route: 041
     Dates: start: 20150601, end: 20150605
  2. ALEMTUZUMAB [Suspect]
     Active Substance: ALEMTUZUMAB
     Dosage: 12 MG,QD
     Route: 041
     Dates: start: 20160608, end: 20160610

REACTIONS (37)
  - Haemorrhage [Not Recovered/Not Resolved]
  - Platelet count decreased [Unknown]
  - Asthenia [Not Recovered/Not Resolved]
  - Asthenia [Recovering/Resolving]
  - Diabetes mellitus [Unknown]
  - Balance disorder [Not Recovered/Not Resolved]
  - Arthropathy [Not Recovered/Not Resolved]
  - Hypotonia [Recovering/Resolving]
  - Muscular weakness [Recovering/Resolving]
  - Pyrexia [Recovered/Resolved]
  - Muscle atrophy [Not Recovered/Not Resolved]
  - Immune thrombocytopenic purpura [Not Recovered/Not Resolved]
  - Condition aggravated [Not Recovered/Not Resolved]
  - Immune system disorder [Recovered/Resolved]
  - Restless legs syndrome [Recovering/Resolving]
  - Weight loss poor [Unknown]
  - White blood cell count decreased [Recovered/Resolved]
  - Disability [Not Recovered/Not Resolved]
  - Multiple sclerosis relapse [Not Recovered/Not Resolved]
  - Blood glucose decreased [Recovered/Resolved]
  - Peripheral swelling [Unknown]
  - Impaired driving ability [Not Recovered/Not Resolved]
  - Therapeutic response unexpected [Unknown]
  - Fatigue [Not Recovered/Not Resolved]
  - General physical health deterioration [Not Recovered/Not Resolved]
  - Limb deformity [Not Recovered/Not Resolved]
  - Therapeutic response decreased [Not Recovered/Not Resolved]
  - Gait disturbance [Not Recovered/Not Resolved]
  - Cardiovascular disorder [Unknown]
  - Dyskinesia [Recovering/Resolving]
  - Muscle tightness [Not Recovered/Not Resolved]
  - Amnesia [Unknown]
  - Rash [Recovering/Resolving]
  - Back injury [Not Recovered/Not Resolved]
  - Muscle spasticity [Not Recovered/Not Resolved]
  - Fall [Not Recovered/Not Resolved]
  - Loss of personal independence in daily activities [Not Recovered/Not Resolved]

NARRATIVE: CASE EVENT DATE: 2015
